FAERS Safety Report 5376461-0 (Version None)
Quarter: 2007Q3

REPORT INFORMATION
  Report Type: 
  Country: None (occurrence: None)
  Receive Date: 20070702
  Receipt Date: 20070625
  Transmission Date: 20080115
  Serious: Yes (Hospitalization)
  Sender: FDA-Public Use
  Company Number: FR-BOEHRINGER INGELHEIM PHARMACEUTICALS, INC.-2003-BP-04162BP

PATIENT
  Sex: Male
  Weight: 56 kg

DRUGS (8)
  1. MICARDIS [Suspect]
     Indication: CARDIOVASCULAR DISORDER
     Route: 048
     Dates: start: 20020722, end: 20030516
  2. MICARDIS [Suspect]
     Indication: CEREBROVASCULAR ACCIDENT PROPHYLAXIS
  3. RAMIPRIL [Suspect]
     Indication: CARDIOVASCULAR DISORDER
     Route: 048
     Dates: start: 20020722, end: 20030516
  4. RAMIPRIL [Suspect]
     Indication: CEREBROVASCULAR ACCIDENT PROPHYLAXIS
  5. LOPRESSOR [Concomitant]
  6. PREVISCAN [Concomitant]
  7. DISCOTRINE [Concomitant]
  8. ATORVASTATIN CALCIUM [Concomitant]

REACTIONS (2)
  - ANAEMIA MACROCYTIC [None]
  - THROMBOCYTOPENIA [None]
